FAERS Safety Report 21972233 (Version 1)
Quarter: 2023Q1

REPORT INFORMATION
  Report Type: Spontaneous
  Country: US (occurrence: None)
  Receive Date: 20230207
  Receipt Date: 20230207
  Transmission Date: 20230417
  Serious: Yes (Hospitalization)
  Sender: FDA-Public Use
  Company Number: None

PATIENT
  Age: 57 Year
  Sex: Male
  Weight: 49 kg

DRUGS (1)
  1. ADALIMUMAB [Suspect]
     Active Substance: ADALIMUMAB
     Indication: Psoriasis
     Dosage: FREQUENCY : AS NEEDED;?
     Route: 058
     Dates: start: 20220524, end: 20230202

REACTIONS (2)
  - Myocardial infarction [None]
  - Arterial occlusive disease [None]

NARRATIVE: CASE EVENT DATE: 20230203
